FAERS Safety Report 8188408-2 (Version None)
Quarter: 2012Q1

REPORT INFORMATION
  Report Type: 
  Country: None (occurrence: None)
  Receive Date: 20120306
  Receipt Date: 20120224
  Transmission Date: 20120608
  Serious: Yes (Other)
  Sender: FDA-Public Use
  Company Number: PHHY2012BG016933

PATIENT
  Age: 55 Year
  Sex: Female

DRUGS (6)
  1. TENAXUM [Concomitant]
  2. HUMALOG MIX 50/50 PEN [Concomitant]
  3. RASILEZ [Suspect]
     Indication: HYPERTENSION
     Dates: start: 20110601
  4. NORVASC [Concomitant]
  5. L-THYROXINE 100 [Concomitant]
  6. CARVEDIL [Concomitant]

REACTIONS (4)
  - BLOOD PRESSURE INCREASED [None]
  - OEDEMA [None]
  - ASPHYXIA [None]
  - PIGMENTATION DISORDER [None]
